FAERS Safety Report 24031247 (Version 1)
Quarter: 2024Q2

REPORT INFORMATION
  Report Type: Spontaneous
  Country: US (occurrence: US)
  Receive Date: 20240629
  Receipt Date: 20240629
  Transmission Date: 20240716
  Serious: Yes (Other)
  Sender: FDA-Public Use
  Company Number: US-AMGEN-USASP2024124367

PATIENT

DRUGS (1)
  1. PREDNISONE [Suspect]
     Active Substance: PREDNISONE
     Indication: Systemic lupus erythematosus
     Dosage: UNK, MILLIGRAM
     Route: 065

REACTIONS (3)
  - Systemic lupus erythematosus [Unknown]
  - Vaccination failure [Unknown]
  - Breakthrough COVID-19 [Unknown]
